FAERS Safety Report 18682320 (Version 1)
Quarter: 2020Q4

REPORT INFORMATION
  Report Type: Spontaneous
  Country: NL (occurrence: NL)
  Receive Date: 20201230
  Receipt Date: 20201230
  Transmission Date: 20210114
  Serious: Yes (Other)
  Sender: FDA-Public Use
  Company Number: NL-ACCORD-212805

PATIENT
  Age: 68 Year
  Sex: Female
  Weight: 56 kg

DRUGS (5)
  1. THYRAX [Concomitant]
     Active Substance: LEVOTHYROXINE
     Dosage: STRENGTH 25 MCG 1.25 2 DAYS 1 DAY 150 MC
  2. CALCIUM CARBONATE/COLECALCIFEROL [Concomitant]
     Active Substance: CALCIUM CARBONATE\CHOLECALCIFEROL
     Dosage: 1.25 G / 800 IU ,D3 800MG
  3. CLOPIDOGREL [Suspect]
     Active Substance: CLOPIDOGREL BISULFATE
     Indication: ANTICOAGULANT THERAPY
     Dosage: 75 MG
     Dates: start: 202011, end: 20201114
  4. PANTOPRAZOLE HTP [Concomitant]
     Dosage: 20MG / GASTRIC ACID TABLET,40MG
  5. MACROGOL/MACROGOL STEARATE [Concomitant]
     Active Substance: POLYETHYLENE GLYCOLS
     Dosage: 2X DAILY 1 SACHET

REACTIONS (2)
  - Angina pectoris [Recovered/Resolved]
  - Rash pruritic [Recovered/Resolved]

NARRATIVE: CASE EVENT DATE: 20201115
